FAERS Safety Report 9844781 (Version 1)
Quarter: 2014Q1

REPORT INFORMATION
  Report Type: Spontaneous
  Country: US (occurrence: None)
  Receive Date: 20140123
  Receipt Date: 20140123
  Transmission Date: 20141002
  Serious: Yes (Disabling)
  Sender: FDA-Public Use
  Company Number: None

PATIENT
  Age: 24 Year
  Sex: Female
  Weight: 127.01 kg

DRUGS (1)
  1. MIRENA IUD [Suspect]
     Indication: CONTRACEPTION

REACTIONS (7)
  - Migraine [None]
  - Abdominal pain [None]
  - Depression [None]
  - Mood swings [None]
  - Anxiety [None]
  - Weight increased [None]
  - Device related infection [None]
